FAERS Safety Report 6245495-6 (Version None)
Quarter: 2009Q2

REPORT INFORMATION
  Report Type: 
  Country: None (occurrence: None)
  Receive Date: 20090625
  Receipt Date: 20090622
  Transmission Date: 20091009
  Serious: Yes (Other)
  Sender: FDA-Public Use
  Company Number: US-AMGEN-US352574

PATIENT
  Sex: Male

DRUGS (4)
  1. NPLATE [Suspect]
     Indication: IDIOPATHIC THROMBOCYTOPENIC PURPURA
     Dates: start: 20081205
  2. CORTICOSTEROIDS [Concomitant]
     Dates: start: 20081124
  3. IMMUNOGLOBULINS [Concomitant]
     Dates: start: 20081124
  4. RITUXIMAB [Concomitant]
     Dates: start: 20081204

REACTIONS (1)
  - PORTAL VEIN THROMBOSIS [None]
